FAERS Safety Report 15715330 (Version 2)
Quarter: 2018Q4

REPORT INFORMATION
  Report Type: Spontaneous
  Country: CH (occurrence: CH)
  Receive Date: 20181212
  Receipt Date: 20181219
  Transmission Date: 20190205
  Serious: Yes (Hospitalization, Other)
  Sender: FDA-Public Use
  Company Number: CH-PFIZER INC-2018505888

PATIENT
  Age: 70 Year
  Sex: Female
  Weight: 48 kg

DRUGS (32)
  1. TRIATEC (RAMIPRIL) [Suspect]
     Active Substance: RAMIPRIL
     Dosage: 5 MG, 1X/DAY (1-0-0)
     Route: 048
     Dates: start: 201811, end: 20181114
  2. ADALAT [Suspect]
     Active Substance: NIFEDIPINE
     Dosage: 20 MG, AS NEEDED (AS NECESSARY)
     Route: 048
     Dates: start: 20181013, end: 20181013
  3. HEPARIN [Suspect]
     Active Substance: HEPARIN SODIUM
     Indication: THROMBOSIS PROPHYLAXIS
     Dosage: 25000 IU, DAILY
  4. METRONIDAZOLE VIFOR MEDICAL [Concomitant]
     Active Substance: METRONIDAZOLE
     Indication: ANTIBIOTIC PROPHYLAXIS
     Dosage: 500 MG, SINGLE
     Route: 041
     Dates: start: 20181012, end: 20181012
  5. MAGNESIUMSULFAT BICHSEL [Concomitant]
     Dosage: 2 G, UNK (IN TOTAL)
     Dates: start: 20181012, end: 20181012
  6. BUPIVACAIN SINTETICA [Concomitant]
     Dosage: UNK
     Route: 008
     Dates: start: 20181012, end: 20181017
  7. FENTANYL SINTETICA [Concomitant]
     Active Substance: FENTANYL CITRATE
     Dosage: UNK
     Route: 008
     Dates: start: 20181012, end: 20181017
  8. NORADRENALIN [NOREPINEPHRINE BITARTRATE] [Concomitant]
     Dosage: 5UG/MIN
     Route: 041
     Dates: start: 20181012, end: 20181012
  9. PROPOFOL MCT FRESENIUS [Concomitant]
     Dosage: UNK
     Route: 041
     Dates: start: 20181012, end: 20181012
  10. FRAGMIN [Suspect]
     Active Substance: DALTEPARIN SODIUM
     Indication: THROMBOSIS PROPHYLAXIS
     Dosage: 5000 IU, 1X/DAY
     Route: 058
     Dates: start: 20181014, end: 20181020
  11. NOVALGIN (METAMIZOLE SODIUM) [Suspect]
     Active Substance: METAMIZOLE SODIUM
     Dosage: 40 GTT, UNK (ALSO REPORTED AS ^ 500 MG/ML 4X40) (EVERY 6 HOURS)
     Route: 048
     Dates: start: 20181014, end: 20181021
  12. TOREM [TORASEMIDE] [Suspect]
     Active Substance: TORSEMIDE
     Dosage: 10 MG, 1X/DAY
     Dates: start: 20181018, end: 20181021
  13. CEFUROXIM FRESENIUS [Suspect]
     Active Substance: CEFUROXIME
     Indication: ANTIBIOTIC PROPHYLAXIS
     Dosage: 1.5 G IN TOTAL
     Route: 041
     Dates: start: 20181012, end: 20181012
  14. PANTOZOL [Suspect]
     Active Substance: PANTOPRAZOLE SODIUM
     Dosage: 40 MG, 1X/DAY (1-0-0)
     Route: 048
     Dates: start: 20181015, end: 20181115
  15. NOVALGIN (METAMIZOLE SODIUM) [Suspect]
     Active Substance: METAMIZOLE SODIUM
     Indication: POSTOPERATIVE ANALGESIA
     Dosage: 1000 MG, 4X/DAY (EVERY 6 HOURS)
     Route: 041
     Dates: start: 20181012, end: 20181014
  16. PASPERTIN [METOCLOPRAMIDE HYDROCHLORIDE] [Suspect]
     Active Substance: METOCLOPRAMIDE HYDROCHLORIDE
     Indication: PROCEDURAL NAUSEA
     Dosage: 10 MG/2ML 1X/DAY
     Route: 041
     Dates: start: 20181011, end: 20181012
  17. PERFALGAN [Suspect]
     Active Substance: ACETAMINOPHEN
     Dosage: 1G/100 ML
     Route: 042
     Dates: start: 20181015, end: 20181015
  18. REMIFENTANIL FRESENIUS [Concomitant]
     Dosage: UNK
     Dates: start: 20181012, end: 20181012
  19. DAFALGAN ODIS [Suspect]
     Active Substance: ACETAMINOPHEN
     Indication: POSTOPERATIVE ANALGESIA
     Dosage: 4000 MG, DAILY (REPORTED AS 500 MG EFFERVESCENT TABLETS 4X2)
     Route: 048
     Dates: start: 20181015, end: 20181021
  20. DAFALGAN ODIS [Suspect]
     Active Substance: ACETAMINOPHEN
     Dosage: 1 DF, 1X/DAY
     Route: 054
     Dates: start: 20181106, end: 20181107
  21. PASPERTIN [METOCLOPRAMIDE HYDROCHLORIDE] [Suspect]
     Active Substance: METOCLOPRAMIDE HYDROCHLORIDE
     Dosage: 10 MG/2ML 3X/DAY (EVERY 8 HOURS)
     Route: 041
     Dates: start: 20181014, end: 20181016
  22. PASPERTIN [METOCLOPRAMIDE HYDROCHLORIDE] [Suspect]
     Active Substance: METOCLOPRAMIDE HYDROCHLORIDE
     Dosage: 30 GTT, 3X/DAY (EVERY 8 HOURS)
     Route: 048
     Dates: start: 20181017, end: 20181019
  23. ADALAT [Suspect]
     Active Substance: NIFEDIPINE
     Dosage: AS NECESSARY
     Route: 048
     Dates: start: 20181018, end: 20181018
  24. MORPHINE HYDROCHLORIDE [Concomitant]
     Active Substance: MORPHINE HYDROCHLORIDE
     Dosage: 1 DF, AS NEEDED (AS NECESSARY)
     Dates: start: 20181012, end: 20181012
  25. ADALAT [Suspect]
     Active Substance: NIFEDIPINE
     Dosage: AS NECESSARY
     Route: 048
     Dates: start: 20181016, end: 20181016
  26. NITRODERM [Suspect]
     Active Substance: NITROGLYCERIN
     Dosage: 10 MG, DAILY (10 MG/24 H)
     Route: 062
     Dates: start: 20181016, end: 20181021
  27. PERFALGAN [Suspect]
     Active Substance: ACETAMINOPHEN
     Dosage: 1G/100 ML
     Route: 042
     Dates: start: 20181011, end: 20181011
  28. PHENYLEPHRIN SINTETICA [Concomitant]
     Dosage: 1 DF, AS NEEDED (AS NECESSARY: 50 -100 UG))
     Dates: start: 20181012, end: 20181012
  29. DAFALGAN ODIS [Suspect]
     Active Substance: ACETAMINOPHEN
     Dosage: 1000 MG, AS NEEDED (REPORTED AS ^AS NECESSARY^)
     Dates: start: 20181022
  30. NOVALGIN (METAMIZOLE SODIUM) [Suspect]
     Active Substance: METAMIZOLE SODIUM
     Dosage: 40 GTT, AS NEEDED (AS NECESSARY)
     Route: 048
     Dates: start: 20181021
  31. ESMERON [Concomitant]
     Active Substance: ROCURONIUM BROMIDE
     Indication: INDUCTION AND MAINTENANCE OF ANAESTHESIA
     Dosage: 50 MG, UNK (IN TOTAL)
     Dates: start: 20181012, end: 20181012
  32. ESMERON [Concomitant]
     Active Substance: ROCURONIUM BROMIDE
     Dosage: 20 MG, UNK (IN TOTAL)
     Dates: start: 20181012, end: 20181012

REACTIONS (2)
  - Prescribed overdose [Unknown]
  - Drug-induced liver injury [Not Recovered/Not Resolved]

NARRATIVE: CASE EVENT DATE: 20181015
